FAERS Safety Report 6632993-6 (Version None)
Quarter: 2010Q1

REPORT INFORMATION
  Report Type: 
  Country: None (occurrence: None)
  Receive Date: 20100310
  Receipt Date: 20100302
  Transmission Date: 20100710
  Serious: Yes (Life-Threatening)
  Sender: FDA-Public Use
  Company Number: 522232

PATIENT
  Age: 19 Year
  Sex: Female

DRUGS (3)
  1. SUCCINYLCHOLINE CHLORIDE [Suspect]
     Indication: ELECTROCONVULSIVE THERAPY
     Dosage: 30 MG
  2. (METOPROL) [Concomitant]
  3. (METHOHEXITAL) [Concomitant]

REACTIONS (2)
  - HYPERKALAEMIA [None]
  - TORSADE DE POINTES [None]
